FAERS Safety Report 26094880 (Version 1)
Quarter: 2025Q4

REPORT INFORMATION
  Report Type: Spontaneous
  Country: CN (occurrence: CN)
  Receive Date: 20251126
  Receipt Date: 20251126
  Transmission Date: 20260118
  Serious: Yes (Other)
  Sender: BEIGENE
  Company Number: CN-BEONE MEDICINES-BGN-2025-020539

PATIENT
  Age: 57 Year
  Sex: Male
  Weight: 65 kg

DRUGS (24)
  1. TISLELIZUMAB [Suspect]
     Active Substance: TISLELIZUMAB
     Indication: Cholangiocarcinoma
     Dosage: 200 MILLIGRAM
  2. TISLELIZUMAB [Suspect]
     Active Substance: TISLELIZUMAB
     Dosage: 200 MILLIGRAM
     Route: 041
  3. TISLELIZUMAB [Suspect]
     Active Substance: TISLELIZUMAB
     Dosage: 200 MILLIGRAM
     Route: 041
  4. TISLELIZUMAB [Suspect]
     Active Substance: TISLELIZUMAB
     Dosage: 200 MILLIGRAM
  5. GEMCITABINE HYDROCHLORIDE [Suspect]
     Active Substance: GEMCITABINE HYDROCHLORIDE
     Indication: Cholangiocarcinoma
     Dosage: 1.4 GRAM
     Dates: start: 20251102, end: 20251102
  6. GEMCITABINE HYDROCHLORIDE [Suspect]
     Active Substance: GEMCITABINE HYDROCHLORIDE
     Dosage: 1.4 GRAM
     Dates: start: 20251102, end: 20251102
  7. GEMCITABINE HYDROCHLORIDE [Suspect]
     Active Substance: GEMCITABINE HYDROCHLORIDE
     Dosage: 1.4 GRAM
     Route: 041
     Dates: start: 20251102, end: 20251102
  8. GEMCITABINE HYDROCHLORIDE [Suspect]
     Active Substance: GEMCITABINE HYDROCHLORIDE
     Dosage: 1.4 GRAM
     Route: 041
     Dates: start: 20251102, end: 20251102
  9. GEMCITABINE HYDROCHLORIDE [Suspect]
     Active Substance: GEMCITABINE HYDROCHLORIDE
     Dosage: 1.4 GRAM
  10. GEMCITABINE HYDROCHLORIDE [Suspect]
     Active Substance: GEMCITABINE HYDROCHLORIDE
     Dosage: 1.4 GRAM
  11. GEMCITABINE HYDROCHLORIDE [Suspect]
     Active Substance: GEMCITABINE HYDROCHLORIDE
     Dosage: 1.4 GRAM
     Route: 041
  12. GEMCITABINE HYDROCHLORIDE [Suspect]
     Active Substance: GEMCITABINE HYDROCHLORIDE
     Dosage: 1.4 GRAM
     Route: 041
  13. PACLITAXEL [Suspect]
     Active Substance: PACLITAXEL
     Indication: Cholangiocarcinoma
     Dosage: 200 MILLIGRAM
     Dates: start: 20251102, end: 20251102
  14. PACLITAXEL [Suspect]
     Active Substance: PACLITAXEL
     Dosage: 200 MILLIGRAM
     Dates: start: 20251102, end: 20251102
  15. PACLITAXEL [Suspect]
     Active Substance: PACLITAXEL
     Dosage: 200 MILLIGRAM
     Route: 041
     Dates: start: 20251102, end: 20251102
  16. PACLITAXEL [Suspect]
     Active Substance: PACLITAXEL
     Dosage: 200 MILLIGRAM
     Route: 041
     Dates: start: 20251102, end: 20251102
  17. PACLITAXEL [Suspect]
     Active Substance: PACLITAXEL
     Dosage: 200 MILLIGRAM
  18. PACLITAXEL [Suspect]
     Active Substance: PACLITAXEL
     Dosage: 200 MILLIGRAM
  19. PACLITAXEL [Suspect]
     Active Substance: PACLITAXEL
     Dosage: 200 MILLIGRAM
     Route: 041
  20. PACLITAXEL [Suspect]
     Active Substance: PACLITAXEL
     Dosage: 200 MILLIGRAM
     Route: 041
  21. BEVACIZUMAB [Suspect]
     Active Substance: BEVACIZUMAB
     Indication: Cholangiocarcinoma
     Dosage: 450 MILLIGRAM
  22. BEVACIZUMAB [Suspect]
     Active Substance: BEVACIZUMAB
     Dosage: 450 MILLIGRAM
     Route: 041
  23. BEVACIZUMAB [Suspect]
     Active Substance: BEVACIZUMAB
     Dosage: 450 MILLIGRAM
     Route: 041
  24. BEVACIZUMAB [Suspect]
     Active Substance: BEVACIZUMAB
     Dosage: 450 MILLIGRAM

REACTIONS (1)
  - Myelosuppression [Recovering/Resolving]

NARRATIVE: CASE EVENT DATE: 20251110
